FAERS Safety Report 15897122 (Version 4)
Quarter: 2019Q2

REPORT INFORMATION
  Report Type: Spontaneous
  Country: JP (occurrence: JP)
  Receive Date: 20190131
  Receipt Date: 20190515
  Transmission Date: 20190711
  Serious: Yes (Hospitalization)
  Sender: FDA-Public Use
  Company Number: JP-GLAXOSMITHKLINE-JP2019JPN013823

PATIENT
  Age: 64 Year
  Sex: Female
  Weight: 48 kg

DRUGS (9)
  1. QUETIAPINE. [Suspect]
     Active Substance: QUETIAPINE
     Dosage: 350 MG, 1D
     Route: 048
  2. LYRICA [Suspect]
     Active Substance: PREGABALIN
     Indication: ANALGESIC THERAPY
     Dosage: 150 MG, 1D
     Route: 048
  3. LAMICTAL [Suspect]
     Active Substance: LAMOTRIGINE
     Indication: BIPOLAR I DISORDER
     Dosage: 25 MG, QD
     Route: 048
     Dates: start: 20180910, end: 20181104
  4. FLUNITRAZEPAM [Suspect]
     Active Substance: FLUNITRAZEPAM
     Indication: INSOMNIA
     Dosage: 1 MG, 1D
     Route: 048
  5. LAMICTAL [Suspect]
     Active Substance: LAMOTRIGINE
     Indication: DEPRESSIVE SYMPTOM
     Dosage: 50 MG,  QD
     Route: 048
     Dates: start: 20181105, end: 20181203
  6. QUETIAPINE. [Suspect]
     Active Substance: QUETIAPINE
     Indication: MOOD ALTERED
     Dosage: 250 MG, 1D
     Route: 048
     Dates: start: 201711, end: 2018
  7. QUETIAPINE. [Suspect]
     Active Substance: QUETIAPINE
     Dosage: 650 MG, 1D
     Route: 048
     Dates: start: 2018
  8. LITHIUM CARBONATE. [Suspect]
     Active Substance: LITHIUM CARBONATE
     Indication: MOOD ALTERED
     Dosage: 800 MG, 1D
     Route: 048
     Dates: start: 2016
  9. ZOPICLONE [Suspect]
     Active Substance: ZOPICLONE
     Indication: INSOMNIA
     Dosage: 7.5 MG, UNK
     Route: 048

REACTIONS (4)
  - Aggression [Recovering/Resolving]
  - Product use issue [Unknown]
  - Mania [Recovering/Resolving]
  - Off label use [Unknown]

NARRATIVE: CASE EVENT DATE: 20181129
